FAERS Safety Report 25824244 (Version 1)
Quarter: 2025Q3

REPORT INFORMATION
  Report Type: Spontaneous
  Country: CA (occurrence: CA)
  Receive Date: 20250919
  Receipt Date: 20250919
  Transmission Date: 20251021
  Serious: Yes (Hospitalization)
  Sender: MYLAN
  Company Number: CA-MYLANLABS-2025M1046586

PATIENT
  Sex: Male

DRUGS (24)
  1. REVATIO [Suspect]
     Active Substance: SILDENAFIL CITRATE
     Indication: Pulmonary arterial hypertension
     Dosage: 20 MILLIGRAM, TID (3 TIMES A DAY)
     Dates: start: 20150521
  2. REVATIO [Suspect]
     Active Substance: SILDENAFIL CITRATE
     Dosage: 20 MILLIGRAM, TID (3 TIMES A DAY)
     Route: 048
     Dates: start: 20150521
  3. REVATIO [Suspect]
     Active Substance: SILDENAFIL CITRATE
     Dosage: 20 MILLIGRAM, TID (3 TIMES A DAY)
     Route: 048
     Dates: start: 20150521
  4. REVATIO [Suspect]
     Active Substance: SILDENAFIL CITRATE
     Dosage: 20 MILLIGRAM, TID (3 TIMES A DAY)
     Dates: start: 20150521
  5. Pantaloc [Concomitant]
  6. Pantaloc [Concomitant]
     Route: 065
  7. Pantaloc [Concomitant]
     Route: 065
  8. Pantaloc [Concomitant]
  9. VENTOLIN [Concomitant]
     Active Substance: ALBUTEROL SULFATE
  10. VENTOLIN [Concomitant]
     Active Substance: ALBUTEROL SULFATE
     Route: 065
  11. VENTOLIN [Concomitant]
     Active Substance: ALBUTEROL SULFATE
     Route: 065
  12. VENTOLIN [Concomitant]
     Active Substance: ALBUTEROL SULFATE
  13. VITAMIN B12 [Concomitant]
     Active Substance: CYANOCOBALAMIN
  14. VITAMIN B12 [Concomitant]
     Active Substance: CYANOCOBALAMIN
     Route: 065
  15. VITAMIN B12 [Concomitant]
     Active Substance: CYANOCOBALAMIN
     Route: 065
  16. VITAMIN B12 [Concomitant]
     Active Substance: CYANOCOBALAMIN
  17. LACTULOSE [Concomitant]
     Active Substance: LACTULOSE
  18. LACTULOSE [Concomitant]
     Active Substance: LACTULOSE
     Route: 065
  19. LACTULOSE [Concomitant]
     Active Substance: LACTULOSE
     Route: 065
  20. LACTULOSE [Concomitant]
     Active Substance: LACTULOSE
  21. NADOLOL [Concomitant]
     Active Substance: NADOLOL
  22. NADOLOL [Concomitant]
     Active Substance: NADOLOL
     Route: 065
  23. NADOLOL [Concomitant]
     Active Substance: NADOLOL
     Route: 065
  24. NADOLOL [Concomitant]
     Active Substance: NADOLOL

REACTIONS (3)
  - Hospitalisation [Unknown]
  - Product use issue [Unknown]
  - Circumstance or information capable of leading to medication error [Unknown]
